FAERS Safety Report 23082111 (Version 1)
Quarter: 2023Q4

REPORT INFORMATION
  Report Type: Spontaneous
  Country: US (occurrence: US)
  Receive Date: 20231019
  Receipt Date: 20231019
  Transmission Date: 20240110
  Serious: Yes (Life-Threatening, Hospitalization, Other)
  Sender: FDA-Public Use
  Company Number: US-MLMSERVICE-20231005-4589222-1

PATIENT
  Age: 32 Year
  Sex: Female

DRUGS (3)
  1. NIFEDIPINE [Interacting]
     Active Substance: NIFEDIPINE
     Indication: Pre-eclampsia
     Dosage: UNK
     Route: 048
  2. MAGNESIUM SULFATE [Interacting]
     Active Substance: MAGNESIUM SULFATE
     Indication: Pre-eclampsia
     Dosage: CONTINUOUS IV INFUSION
     Route: 042
  3. LABETALOL [Concomitant]
     Active Substance: LABETALOL\LABETALOL HYDROCHLORIDE
     Indication: Pre-eclampsia
     Dosage: UNK
     Route: 042

REACTIONS (3)
  - Tetany [Recovered/Resolved]
  - Drug interaction [Recovered/Resolved]
  - Maternal exposure during pregnancy [Unknown]
